FAERS Safety Report 7984604-5 (Version None)
Quarter: 2011Q4

REPORT INFORMATION
  Report Type: 
  Country: None (occurrence: None)
  Receive Date: 20111216
  Receipt Date: 20111209
  Transmission Date: 20120403
  Serious: Yes (Other)
  Sender: FDA-Public Use
  Company Number: DE-JNJFOC-20111206537

PATIENT
  Age: 22 Year
  Sex: Male

DRUGS (3)
  1. VALPROATE SODIUM [Concomitant]
     Route: 065
  2. CLOZAPINE [Concomitant]
     Route: 065
  3. PALIPERIDONE [Suspect]
     Indication: SCHIZOPHRENIA, PARANOID TYPE
     Route: 030
     Dates: start: 20110801

REACTIONS (1)
  - BLOOD CREATINE PHOSPHOKINASE INCREASED [None]
